FAERS Safety Report 7399835-5 (Version None)
Quarter: 2011Q2

REPORT INFORMATION
  Report Type: 
  Country: None (occurrence: None)
  Receive Date: 20110407
  Receipt Date: 20110404
  Transmission Date: 20111010
  Serious: Yes (Death, Other)
  Sender: FDA-Public Use
  Company Number: US-PFIZER INC-2011074305

PATIENT
  Age: 24 Year
  Sex: Male

DRUGS (2)
  1. XANAX [Suspect]
  2. OXYCODONE [Suspect]

REACTIONS (1)
  - ACCIDENTAL OVERDOSE [None]
